FAERS Safety Report 13981361 (Version 1)
Quarter: 2017Q3

REPORT INFORMATION
  Report Type: Spontaneous
  Country: US (occurrence: US)
  Receive Date: 20170915
  Receipt Date: 20170915
  Transmission Date: 20171128
  Serious: Yes (Disabling, Other)
  Sender: FDA-Public Use
  Company Number: None

PATIENT
  Sex: Female
  Weight: 72 kg

DRUGS (10)
  1. VITAMIN D [Concomitant]
     Active Substance: CHOLECALCIFEROL
  2. MULTI [Concomitant]
  3. BUPROPION HCL ER (SR) 150MG TB12 [Suspect]
     Active Substance: BUPROPION HYDROCHLORIDE
     Indication: DEPRESSION
     Dosage: ?          QUANTITY:1 TABLET(S);?
     Route: 048
  4. IRON [Concomitant]
     Active Substance: IRON
  5. IBUPROFIN [Concomitant]
     Active Substance: IBUPROFEN
  6. B1 [Concomitant]
  7. XANAX [Concomitant]
     Active Substance: ALPRAZOLAM
  8. VITAMIN B12 [Concomitant]
     Active Substance: CYANOCOBALAMIN
  9. FLONASE [Concomitant]
     Active Substance: FLUTICASONE PROPIONATE
  10. CALCIUM [Concomitant]
     Active Substance: CALCIUM

REACTIONS (7)
  - Product quality issue [None]
  - Product substitution issue [None]
  - Euphoric mood [None]
  - Crying [None]
  - Anxiety [None]
  - Depression [None]
  - Depressed mood [None]

NARRATIVE: CASE EVENT DATE: 20170803
